FAERS Safety Report 15712677 (Version 1)
Quarter: 2018Q4

REPORT INFORMATION
  Report Type: Report from Study
  Country: None (occurrence: CA)
  Receive Date: 20181212
  Receipt Date: 20181212
  Transmission Date: 20190205
  Serious: Yes (Other)
  Sender: FDA-Public Use
  Company Number: CA-ABBVIE-18K-028-2214114-00

PATIENT
  Age: 52 Year
  Sex: Male

DRUGS (2)
  1. HUMIRA [Suspect]
     Active Substance: ADALIMUMAB
     Route: 058
     Dates: start: 2018
  2. HUMIRA [Suspect]
     Active Substance: ADALIMUMAB
     Indication: PSORIASIS
     Route: 058
     Dates: start: 20110523, end: 201708

REACTIONS (3)
  - Oesophageal carcinoma [Not Recovered/Not Resolved]
  - Gastric cancer [Unknown]
  - Mass [Unknown]

NARRATIVE: CASE EVENT DATE: 20170915
